FAERS Safety Report 5454468-2 (Version None)
Quarter: 2007Q3

REPORT INFORMATION
  Report Type: 
  Country: None (occurrence: None)
  Receive Date: 20070917
  Receipt Date: 20070904
  Transmission Date: 20080115
  Serious: Yes (Death, Other)
  Sender: FDA-Public Use
  Company Number: US-SHR-US-2007-028626

PATIENT
  Age: 21 Year
  Sex: Female

DRUGS (2)
  1. CAMPATH [Suspect]
     Indication: LIVER TRANSPLANT
     Dosage: 30 MG, 1 DOSE
  2. TACROLIMUS [Suspect]
     Dosage: RAPID TAPER TO EVERY OTHER DAY

REACTIONS (7)
  - AUTOIMMUNE DISORDER [None]
  - AUTOIMMUNE HEPATITIS [None]
  - BILE DUCT STENOSIS [None]
  - CARDIAC TAMPONADE [None]
  - PANCREATITIS [None]
  - PERICARDITIS [None]
  - TRANSPLANT FAILURE [None]
